FAERS Safety Report 16441730 (Version 1)
Quarter: 2019Q2

REPORT INFORMATION
  Report Type: Report from Study
  Country: None (occurrence: US)
  Receive Date: 20190617
  Receipt Date: 20190617
  Transmission Date: 20190711
  Serious: No
  Sender: FDA-Public Use
  Company Number: US-US WORLDMEDS, LLC-USW201806-000858

PATIENT
  Age: 82 Year
  Sex: Male

DRUGS (6)
  1. GEMFIBROZIL. [Concomitant]
     Active Substance: GEMFIBROZIL
     Route: 048
  2. RASAGILINE. [Concomitant]
     Active Substance: RASAGILINE
     Route: 048
  3. APOKYN [Suspect]
     Active Substance: APOMORPHINE HYDROCHLORIDE
     Indication: PARKINSON^S DISEASE
     Route: 058
     Dates: start: 20180227
  4. ATORVASTATIN [Concomitant]
     Active Substance: ATORVASTATIN
  5. RYTARY [Concomitant]
     Active Substance: CARBIDOPA\LEVODOPA
  6. ASPIRIN. [Concomitant]
     Active Substance: ASPIRIN
     Route: 048

REACTIONS (1)
  - Nausea [Recovered/Resolved]

NARRATIVE: CASE EVENT DATE: 201803
